FAERS Safety Report 9207583 (Version 1)
Quarter: 2013Q1

REPORT INFORMATION
  Report Type: Spontaneous
  Country: US (occurrence: None)
  Receive Date: 20120817
  Receipt Date: 20120817
  Transmission Date: 20140127
  Serious: Yes (Other)
  Sender: FDA-Public Use
  Company Number: ADR-2011-11561

PATIENT
  Age: 12 Year
  Sex: Female

DRUGS (1)
  1. BACLOFEN [Suspect]

REACTIONS (3)
  - Pseudomonas infection [None]
  - Abdominal infection [None]
  - Pyrexia [None]
